FAERS Safety Report 12304932 (Version 1)
Quarter: 2016Q2

REPORT INFORMATION
  Report Type: Spontaneous
  Country: US (occurrence: US)
  Receive Date: 20160426
  Receipt Date: 20160426
  Transmission Date: 20160815
  Serious: No
  Sender: FDA-Public Use
  Company Number: US-PFIZER INC-2016208848

PATIENT
  Age: 61 Year
  Sex: Female

DRUGS (4)
  1. ADVIL PM [Suspect]
     Active Substance: DIPHENHYDRAMINE CITRATE\IBUPROFEN
     Indication: SLEEP DISORDER
  2. ADVIL [Concomitant]
     Active Substance: IBUPROFEN
     Dosage: UNKNOWN
  3. ZZZQUIL NIGHTTIME SLEEP-AID [Suspect]
     Active Substance: DIPHENHYDRAMINE HYDROCHLORIDE
     Indication: SLEEP DISORDER
     Dosage: UNKNOWN
  4. ADVIL PM [Suspect]
     Active Substance: DIPHENHYDRAMINE CITRATE\IBUPROFEN
     Indication: TOOTH DISORDER
     Dosage: 1 DF, UNK

REACTIONS (11)
  - Glossodynia [Recovered/Resolved]
  - Nervousness [Unknown]
  - Dysgeusia [Recovered/Resolved]
  - Intentional product misuse [Unknown]
  - Foreign body [Unknown]
  - Abdominal discomfort [Unknown]
  - Product taste abnormal [Recovered/Resolved]
  - Product size issue [Unknown]
  - Intentional product misuse [Recovered/Resolved]
  - Oral discomfort [Unknown]
  - Abdominal pain upper [Unknown]
